FAERS Safety Report 4782613-0 (Version None)
Quarter: 2005Q3

REPORT INFORMATION
  Report Type: 
  Country: None (occurrence: None)
  Receive Date: 20050929
  Receipt Date: 20050426
  Transmission Date: 20060218
  Serious: No
  Sender: FDA-Public Use
  Company Number: 403685

PATIENT
  Age: 66 Year
  Sex: Male

DRUGS (7)
  1. COREG [Suspect]
     Dosage: 6.25MG TWICE PER DAY
     Route: 048
     Dates: start: 20050424
  2. ATIVAN [Concomitant]
  3. ZESTRIL [Concomitant]
  4. WELLBUTRIN [Concomitant]
  5. LIPITOR [Concomitant]
  6. PREVACID [Concomitant]
  7. PRINIVIL [Concomitant]

REACTIONS (1)
  - RASH [None]
